FAERS Safety Report 9324410 (Version 1)
Quarter: 2013Q2

REPORT INFORMATION
  Report Type: Spontaneous
  Country: DE (occurrence: DE)
  Receive Date: 20130603
  Receipt Date: 20130603
  Transmission Date: 20140414
  Serious: Yes (Other)
  Sender: FDA-Public Use
  Company Number: DE-ASTRAZENECA-2013SE37989

PATIENT
  Age: 17929 Day
  Sex: Female

DRUGS (1)
  1. VIMOVO [Suspect]
     Indication: PAIN
     Dosage: 500/20 MG TWO TIMES A DAY
     Route: 048
     Dates: start: 20130508, end: 20130509

REACTIONS (3)
  - Visual impairment [Recovered/Resolved]
  - Erythema [Recovered/Resolved]
  - Palpitations [Recovered/Resolved]
